FAERS Safety Report 5226912-7 (Version None)
Quarter: 2007Q1

REPORT INFORMATION
  Report Type: 
  Country: None (occurrence: None)
  Receive Date: 20070201
  Receipt Date: 20070201
  Transmission Date: 20070707
  Serious: Yes (Other)
  Sender: FDA-Public Use
  Company Number: None

PATIENT
  Age: 23 Year
  Sex: Female
  Weight: 120.6568 kg

DRUGS (2)
  1. RHOGAM [Suspect]
     Indication: PREGNANCY
     Dosage: 300MG  IM
     Route: 030
     Dates: start: 20060725
  2. RHOGAM [Suspect]
     Indication: RHESUS ANTIBODIES NEGATIVE
     Dosage: 300MG  IM
     Route: 030
     Dates: start: 20060725

REACTIONS (1)
  - ANTIBODY TEST POSITIVE [None]
